FAERS Safety Report 23097615 (Version 2)
Quarter: 2023Q4

REPORT INFORMATION
  Report Type: Spontaneous
  Country: GB (occurrence: GB)
  Receive Date: 20231023
  Receipt Date: 20231024
  Transmission Date: 20240110
  Serious: Yes (Other)
  Sender: FDA-Public Use
  Company Number: GB-MLMSERVICE-20231016-4610883-1

PATIENT
  Age: 59 Year
  Sex: Female

DRUGS (1)
  1. EXEMESTANE [Suspect]
     Active Substance: EXEMESTANE
     Indication: Breast cancer stage II
     Dosage: UNK

REACTIONS (2)
  - Dupuytren^s contracture [Unknown]
  - Disease recurrence [Unknown]
